FAERS Safety Report 6886907-4 (Version None)
Quarter: 2010Q3

REPORT INFORMATION
  Report Type: 
  Country: None (occurrence: None)
  Receive Date: 20100730
  Receipt Date: 20100721
  Transmission Date: 20110219
  Serious: Yes (Hospitalization, Disabling)
  Sender: FDA-Public Use
  Company Number: ES-BAYER-201021571GPV

PATIENT
  Age: 70 Year
  Sex: Male

DRUGS (29)
  1. SORAFENIB [Suspect]
     Indication: COLORECTAL CANCER
     Dosage: TOTAL DAILY DOSE: 400 MG
     Route: 048
     Dates: start: 20100225, end: 20100322
  2. SORAFENIB [Suspect]
     Dosage: TOTAL DAILY DOSE: 800 MG  UNIT DOSE: 200 MG
     Route: 048
     Dates: start: 20100118, end: 20100209
  3. SORAFENIB [Suspect]
     Dates: start: 20100210, end: 20100224
  4. OXALIPLATIN [Suspect]
     Indication: COLORECTAL CANCER
     Dosage: 120 TOTAL DOSE
     Route: 042
     Dates: start: 20100310, end: 20100310
  5. OXALIPLATIN [Suspect]
     Dosage: 120 TOTAL DOSE
     Route: 042
     Dates: start: 20100224, end: 20100224
  6. OXALIPLATIN [Suspect]
     Dosage: 150 TOTAL DOSE
     Route: 042
     Dates: start: 20100209, end: 20100209
  7. OXALIPLATIN [Suspect]
     Dosage: 150
     Route: 042
     Dates: start: 20100118, end: 20100118
  8. LEUCOVORIN CALCIUM [Suspect]
     Indication: COLORECTAL CANCER
     Dosage: 700 TOTAL DOSE
     Route: 042
     Dates: start: 20100310, end: 20100310
  9. LEUCOVORIN CALCIUM [Suspect]
     Dosage: 700 TOTAL DOSE
     Route: 042
     Dates: start: 20100118, end: 20100118
  10. LEUCOVORIN CALCIUM [Suspect]
     Dosage: 700 TOTAL DOSE
     Route: 042
     Dates: start: 20100224, end: 20100224
  11. LEUCOVORIN CALCIUM [Suspect]
     Dosage: 700 TOTAL DOSE
     Route: 042
     Dates: start: 20100209, end: 20100209
  12. FLUOROURACIL [Suspect]
     Indication: COLORECTAL CANCER
     Dosage: 4300.00 TOTAL DOSE
     Route: 042
     Dates: start: 20100209, end: 20100211
  13. FLUOROURACIL [Suspect]
     Dosage: 4300.00 TOTAL DOSE
     Route: 042
     Dates: start: 20100310, end: 20100312
  14. FLUOROURACIL [Suspect]
     Dosage: 4300.00 TOTAL DOSE
     Route: 042
     Dates: start: 20100224, end: 20100226
  15. FLUOROURACIL [Suspect]
     Dosage: 700 TOTAL DOSE
     Route: 040
     Dates: start: 20100310, end: 20100310
  16. FLUOROURACIL [Suspect]
     Dosage: 700 TOTAL DOSE
     Route: 040
     Dates: start: 20100224, end: 20100224
  17. FLUOROURACIL [Suspect]
     Dosage: 700TOTAL DOSR
     Route: 040
     Dates: start: 20100209, end: 20100209
  18. FLUOROURACIL [Suspect]
     Dosage: 700 TOTAL DOSE
     Route: 040
     Dates: start: 20100118, end: 20100118
  19. FLUOROURACIL [Suspect]
     Dosage: 4300.00 TOAL DOSE EVERY TWO WEEKS FOR THREE DAYS
     Route: 041
     Dates: start: 20100118, end: 20100120
  20. ADIRO [Concomitant]
     Indication: HYPERTENSION
     Dates: start: 20060101
  21. ORAL ANTIDIABETIC [Concomitant]
     Indication: DIABETES MELLITUS
     Route: 048
     Dates: start: 19950101
  22. INSULINE [Concomitant]
     Indication: DIABETES MELLITUS
     Dates: start: 20060101
  23. OMEPRAZOLE [Concomitant]
     Indication: PROPHYLAXIS
     Route: 048
     Dates: start: 20100101
  24. TETRAHYDROZOLINE [Concomitant]
     Indication: RETINOPATHY
     Route: 047
  25. CANDESARTAN CILEXETIL [Concomitant]
     Indication: HYPERTENSION
  26. DEXAMETHASONE [Concomitant]
     Indication: PREMEDICATION
     Dates: start: 20100118, end: 20100118
  27. DEXAMETHASONE [Concomitant]
     Dates: start: 20100209, end: 20100209
  28. ONDANSETRON [Concomitant]
     Indication: PREMEDICATION
     Dates: start: 20100118, end: 20100118
  29. ONDANSETRON [Concomitant]
     Dates: start: 20100209, end: 20100209

REACTIONS (7)
  - CEREBRAL ISCHAEMIA [None]
  - DECREASED APPETITE [None]
  - DIARRHOEA [None]
  - DYSAESTHESIA [None]
  - HYPERGLYCAEMIA [None]
  - HYPERTENSION [None]
  - MYOCARDIAL ISCHAEMIA [None]
